FAERS Safety Report 23197689 (Version 3)
Quarter: 2024Q1

REPORT INFORMATION
  Report Type: Spontaneous
  Country: JP (occurrence: JP)
  Receive Date: 20231117
  Receipt Date: 20240131
  Transmission Date: 20240410
  Serious: Yes (Death, Other)
  Sender: FDA-Public Use
  Company Number: JP-CHUGAI-2023040651

PATIENT
  Age: 74 Year
  Sex: Male
  Weight: 41.3 kg

DRUGS (20)
  1. POLIVY [Suspect]
     Active Substance: POLATUZUMAB VEDOTIN-PIIQ
     Indication: Diffuse large B-cell lymphoma
     Dosage: UNK
     Route: 065
     Dates: start: 20231004, end: 20231004
  2. RITUXAN [Suspect]
     Active Substance: RITUXIMAB
     Indication: Diffuse large B-cell lymphoma
     Dosage: UNK
     Route: 065
     Dates: start: 20230919, end: 20230919
  3. RITUXAN [Suspect]
     Active Substance: RITUXIMAB
     Dosage: UNK
     Route: 065
     Dates: start: 20231006, end: 20231006
  4. CYCLOPHOSPHAMIDE [Suspect]
     Active Substance: CYCLOPHOSPHAMIDE
     Indication: Diffuse large B-cell lymphoma
     Dosage: UNK
     Route: 065
     Dates: start: 20230913, end: 20230913
  5. CYCLOPHOSPHAMIDE [Suspect]
     Active Substance: CYCLOPHOSPHAMIDE
     Dosage: UNK
     Route: 065
     Dates: start: 20231005, end: 20231005
  6. DOXORUBICIN HYDROCHLORIDE [Suspect]
     Active Substance: DOXORUBICIN HYDROCHLORIDE
     Indication: Diffuse large B-cell lymphoma
     Dosage: UNK
     Route: 065
     Dates: start: 20230913, end: 20230913
  7. DOXORUBICIN HYDROCHLORIDE [Suspect]
     Active Substance: DOXORUBICIN HYDROCHLORIDE
     Dosage: UNK
     Route: 065
     Dates: start: 20231005, end: 20231005
  8. PREDNISOLONE [Suspect]
     Active Substance: PREDNISOLONE
     Indication: Diffuse large B-cell lymphoma
     Dosage: UNK
     Route: 048
     Dates: start: 20231004, end: 20231008
  9. PREDONINE [Suspect]
     Active Substance: PREDNISOLONE
     Indication: Diffuse large B-cell lymphoma
     Dosage: 100 MILLIGRAM, QD
     Route: 065
     Dates: start: 20230913, end: 20230917
  10. FILGRASTIM [Concomitant]
     Active Substance: FILGRASTIM
     Dosage: UNK
     Dates: start: 20231009, end: 20231015
  11. SODIUM CHLORIDE [Concomitant]
     Active Substance: SODIUM CHLORIDE
     Dosage: 3 GRAM, TID
     Dates: start: 20231006, end: 20231009
  12. DAYVIGO [Concomitant]
     Active Substance: LEMBOREXANT
     Dosage: 2.5 MILLIGRAM, HS
     Dates: start: 20231006, end: 20231009
  13. TRAZODONE HYDROCHLORIDE [Concomitant]
     Active Substance: TRAZODONE HYDROCHLORIDE
     Dosage: UNK, HS
     Dates: start: 20231006, end: 20231009
  14. VONOPRAZAN FUMARATE [Concomitant]
     Active Substance: VONOPRAZAN FUMARATE
     Dosage: 10 MILLIGRAM, QD
     Dates: start: 20230902, end: 20231009
  15. PANTETHINE [Concomitant]
     Active Substance: PANTETHINE
     Dosage: 100 MILLIGRAM, TID
     Dates: start: 20230926, end: 20231009
  16. MAGNESIUM OXIDE [Concomitant]
     Active Substance: MAGNESIUM OXIDE
     Dosage: 330 MILLIGRAM, TID
     Dates: start: 20230926, end: 20231009
  17. FLUCONAZOLE [Concomitant]
     Active Substance: FLUCONAZOLE
     Dosage: 100 MILLIGRAM, QD
     Dates: start: 20230926, end: 20231009
  18. LEVOFLOXACIN HEMIHYDRATE [Concomitant]
     Active Substance: LEVOFLOXACIN
     Dosage: 500 MILLIGRAM, HS
     Dates: start: 20230928, end: 20231009
  19. SULFAMETHOXAZOLE\TRIMETHOPRIM [Concomitant]
     Active Substance: SULFAMETHOXAZOLE\TRIMETHOPRIM
     Dosage: 1 DOSAGE FORM, TIW
     Dates: start: 20230929, end: 20231009
  20. AMITIZA [Concomitant]
     Active Substance: LUBIPROSTONE
     Dosage: 24 MICROGRAM, BID
     Dates: start: 20231005, end: 20231009

REACTIONS (10)
  - Small intestinal perforation [Fatal]
  - Gastric ulcer [Fatal]
  - Mouth ulceration [Fatal]
  - COVID-19 [Fatal]
  - Cytomegalovirus gastrointestinal infection [Fatal]
  - Pancreatitis [Unknown]
  - Pneumocystis jirovecii pneumonia [Unknown]
  - COVID-19 pneumonia [Unknown]
  - Clostridium test positive [Unknown]
  - Aspergillus test [Unknown]

NARRATIVE: CASE EVENT DATE: 20231014
